FAERS Safety Report 8385712-X (Version None)
Quarter: 2012Q2

REPORT INFORMATION
  Report Type: 
  Country: None (occurrence: None)
  Receive Date: 20120523
  Receipt Date: 20120515
  Transmission Date: 20120825
  Serious: Yes (Death)
  Sender: FDA-Public Use
  Company Number: 201205063

PATIENT
  Age: 58 Year
  Sex: Male

DRUGS (10)
  1. OMEPRAZOLE [Concomitant]
  2. METFORMIN HCL [Concomitant]
  3. ZOLPIDEM [Concomitant]
  4. QUINAPRIL HCL [Concomitant]
  5. XIAFLEX [Suspect]
     Indication: DUPUYTREN'S CONTRACTURE
     Dosage: 1 IN 1 D, INTRALESIONAL
     Dates: start: 20120312, end: 20120312
  6. SIMVASTATIN [Concomitant]
  7. ENDOCET (PARACETAMOL) [Concomitant]
  8. AMLODIPINE [Concomitant]
  9. PILOCARPINE [Concomitant]
  10. NUMOISYN (SORBITOL) [Concomitant]

REACTIONS (1)
  - CEREBROVASCULAR ACCIDENT [None]
